FAERS Safety Report 8777239 (Version 1)
Quarter: 2012Q4

REPORT INFORMATION
  Report Type: 
  Country: US (occurrence: US)
  Receive Date: 20120915
  Receipt Date: 20120915
  Transmission Date: 20130627
  Serious: No
  Sender: FDA-Public Use
  Company Number: US-009507513-1209USA001926

PATIENT

DRUGS (1)
  1. IMPLANON [Suspect]
     Dosage: UNK
     Dates: end: 201209

REACTIONS (1)
  - Unintended pregnancy [Not Recovered/Not Resolved]
